FAERS Safety Report 8832262 (Version 1)
Quarter: 2012Q4

REPORT INFORMATION
  Report Type: 
  Country: US (occurrence: US)
  Receive Date: 20121009
  Receipt Date: 20121009
  Transmission Date: 20130627
  Serious: Yes (Death)
  Sender: FDA-Public Use
  Company Number: US-GILEAD-2012-0062280

PATIENT
  Age: 2 Year
  Sex: Female

DRUGS (5)
  1. VISTIDE [Suspect]
     Indication: POLYOMAVIRUS-ASSOCIATED NEPHROPATHY
     Dosage: 0.25 mg/kg, Q2Wk
     Route: 042
  2. VISTIDE [Suspect]
     Dosage: 5 mg/kg, Q1Wk
  3. IMMUNOGLOBULIN                     /00025201/ [Concomitant]
     Indication: BK VIRUS INFECTION
     Dosage: UNK UNK, Q1Wk
     Route: 042
  4. IMMUNOGLOBULIN                     /00025201/ [Concomitant]
     Dosage: UNK, Q1Wk
  5. SIROLIMUS [Concomitant]
     Indication: IMMUNOSUPPRESSION

REACTIONS (2)
  - Drug ineffective for unapproved indication [Fatal]
  - Encephalitis viral [Fatal]
